FAERS Safety Report 11088085 (Version 1)
Quarter: 2015Q2

REPORT INFORMATION
  Report Type: Spontaneous
  Country: US (occurrence: US)
  Receive Date: 20150504
  Receipt Date: 20150504
  Transmission Date: 20150821
  Serious: No
  Sender: FDA-Public Use
  Company Number: US-PFIZER INC-2015146394

PATIENT
  Age: 54 Year
  Sex: Female

DRUGS (2)
  1. LEVOTHROID [Concomitant]
     Active Substance: LEVOTHYROXINE SODIUM
     Dosage: UNK
  2. SUTENT [Suspect]
     Active Substance: SUNITINIB MALATE
     Indication: SALIVARY GLAND CANCER
     Dosage: 37.5 MG, CYCLIC (DAILY 28 ON 14 OFF)
     Route: 048
     Dates: start: 20150309

REACTIONS (4)
  - Diarrhoea [Unknown]
  - Product use issue [Unknown]
  - Oral mucosal eruption [Unknown]
  - Headache [Unknown]

NARRATIVE: CASE EVENT DATE: 20150425
